FAERS Safety Report 4690334-8 (Version None)
Quarter: 2005Q2

REPORT INFORMATION
  Report Type: 
  Country: None (occurrence: None)
  Receive Date: 20050615
  Receipt Date: 20040323
  Transmission Date: 20051028
  Serious: Yes (Hospitalization)
  Sender: FDA-Public Use
  Company Number: FR-SANOFI-SYNTHELABO-F01200400640

PATIENT
  Sex: Male

DRUGS (4)
  1. OXALIPLATIN [Suspect]
     Indication: PANCREATIC CARCINOMA
     Route: 042
     Dates: start: 20040311, end: 20040311
  2. GEMCITABINE [Suspect]
     Route: 042
     Dates: start: 20040310, end: 20040310
  3. SOLU-MEDROL [Concomitant]
     Dosage: UNK
     Route: 065
     Dates: start: 20040311, end: 20040311
  4. KYTRIL [Concomitant]
     Dosage: UNK
     Route: 065
     Dates: start: 20040311, end: 20040311

REACTIONS (2)
  - ATRIAL FLUTTER [None]
  - SYNCOPE [None]
